FAERS Safety Report 7402741-0 (Version None)
Quarter: 2011Q2

REPORT INFORMATION
  Report Type: 
  Country: None (occurrence: None)
  Receive Date: 20110408
  Receipt Date: 20110401
  Transmission Date: 20111010
  Serious: Yes (Hospitalization)
  Sender: FDA-Public Use
  Company Number: US-SHIRE-SPV1-2011-00560

PATIENT
  Age: 12 Year
  Sex: Female

DRUGS (3)
  1. VYVANSE [Suspect]
     Dosage: 30 MG, 1X/DAY:QD
     Route: 048
     Dates: start: 20100320, end: 20100101
  2. VYVANSE [Suspect]
     Dosage: 30 MG, 1X/DAY:QD
     Route: 048
     Dates: start: 20110310, end: 20110310
  3. VYVANSE [Suspect]
     Indication: ATTENTION DEFICIT/HYPERACTIVITY DISORDER
     Dosage: 20 MG, 1X/DAY:QD
     Route: 048
     Dates: end: 20100319

REACTIONS (6)
  - ABNORMAL BEHAVIOUR [None]
  - THERAPY CESSATION [None]
  - VISION BLURRED [None]
  - APNOEA [None]
  - HEADACHE [None]
  - IMPULSIVE BEHAVIOUR [None]
